FAERS Safety Report 24010915 (Version 2)
Quarter: 2024Q3

REPORT INFORMATION
  Report Type: Spontaneous
  Country: BE (occurrence: BE)
  Receive Date: 20240625
  Receipt Date: 20240709
  Transmission Date: 20241016
  Serious: Yes (Other)
  Sender: PFIZER
  Company Number: BE-PFIZER INC-202400199766

PATIENT
  Sex: Male
  Weight: 60 kg

DRUGS (2)
  1. LORLATINIB [Suspect]
     Active Substance: LORLATINIB
     Indication: Non-small cell lung cancer
     Dosage: 25 MG, 2X/DAY
     Route: 048
     Dates: start: 202401, end: 20240614
  2. PANTOPRAZOLE SODIUM [Concomitant]
     Active Substance: PANTOPRAZOLE SODIUM
     Indication: Gastric ulcer
     Dosage: 20 MG, 1X/DAY

REACTIONS (4)
  - Systemic lupus erythematosus [Recovering/Resolving]
  - Anger [Recovering/Resolving]
  - Rash [Unknown]
  - Hypercholesterolaemia [Unknown]

NARRATIVE: CASE EVENT DATE: 20240201
